FAERS Safety Report 15125593 (Version 3)
Quarter: 2018Q3

REPORT INFORMATION
  Report Type: Spontaneous
  Country: US (occurrence: US)
  Receive Date: 20180710
  Receipt Date: 20180815
  Transmission Date: 20181010
  Serious: Yes (Other)
  Sender: FDA-Public Use
  Company Number: US-PFIZER INC-2018274374

PATIENT
  Age: 77 Year
  Sex: Female
  Weight: 58.96 kg

DRUGS (2)
  1. IBRANCE [Suspect]
     Active Substance: PALBOCICLIB
     Indication: BREAST CANCER
     Dosage: 75 MG, CYCLIC  (DAY 1?21 Q 28 DAYS)
     Route: 048
  2. IBRANCE [Suspect]
     Active Substance: PALBOCICLIB
     Indication: BREAST CANCER METASTATIC
     Dosage: 125 MG, CYCLIC (DAYS 1 TO 21 EVERY 28 DAYS/D 1 ?21 Q 28 DAYS)
     Route: 048
     Dates: start: 20180620, end: 20180705

REACTIONS (5)
  - Full blood count decreased [Unknown]
  - Benign neoplasm [Unknown]
  - White blood cell count decreased [Unknown]
  - Red blood cell count decreased [Unknown]
  - Paraesthesia [Unknown]
